FAERS Safety Report 17288638 (Version 26)
Quarter: 2024Q3

REPORT INFORMATION
  Report Type: Spontaneous
  Country: IL (occurrence: IL)
  Receive Date: 20200120
  Receipt Date: 20240709
  Transmission Date: 20241016
  Serious: Yes (Other)
  Sender: PFIZER
  Company Number: IL-PFIZER INC-2018190864

PATIENT
  Age: 49 Year
  Sex: Male

DRUGS (34)
  1. ELELYSO [Suspect]
     Active Substance: TALIGLUCERASE ALFA
     Indication: Gaucher^s disease
     Dosage: 200 IU (2600UN TWICE A MONTH )
     Route: 042
     Dates: start: 20160301, end: 20160301
  2. ELELYSO [Suspect]
     Active Substance: TALIGLUCERASE ALFA
     Dosage: 2600 IU, UNK (PER INFUSION/TREATMENT)
     Route: 042
  3. ELELYSO [Suspect]
     Active Substance: TALIGLUCERASE ALFA
     Dosage: UNK
     Route: 042
  4. ELELYSO [Suspect]
     Active Substance: TALIGLUCERASE ALFA
     Dosage: UNK
  5. ELELYSO [Suspect]
     Active Substance: TALIGLUCERASE ALFA
     Dosage: UNK
  6. ELELYSO [Suspect]
     Active Substance: TALIGLUCERASE ALFA
     Dosage: UNK
  7. ELELYSO [Suspect]
     Active Substance: TALIGLUCERASE ALFA
     Dosage: UNK
  8. ELELYSO [Suspect]
     Active Substance: TALIGLUCERASE ALFA
     Dosage: UNK
  9. ELELYSO [Suspect]
     Active Substance: TALIGLUCERASE ALFA
     Dosage: UNK
  10. ELELYSO [Suspect]
     Active Substance: TALIGLUCERASE ALFA
     Dosage: UNK
  11. ELELYSO [Suspect]
     Active Substance: TALIGLUCERASE ALFA
     Dosage: UNK
  12. ELELYSO [Suspect]
     Active Substance: TALIGLUCERASE ALFA
     Dosage: UNK
  13. ELELYSO [Suspect]
     Active Substance: TALIGLUCERASE ALFA
     Dosage: 2600 IU, UNK (PER INFUSION/TREATMENT) FOR HOUR AND A HALF
     Route: 042
  14. ELELYSO [Suspect]
     Active Substance: TALIGLUCERASE ALFA
     Dosage: 2600 IU, UNK (DURATION AN HOUR AND A HALF)
  15. ELELYSO [Suspect]
     Active Substance: TALIGLUCERASE ALFA
     Dosage: 2600 IU (FOR INFUSION TWICE A MONTH)
     Route: 042
  16. ELELYSO [Suspect]
     Active Substance: TALIGLUCERASE ALFA
     Dosage: 2600 UNKNOWN UNIT
     Route: 042
  17. ELELYSO [Suspect]
     Active Substance: TALIGLUCERASE ALFA
     Dosage: 2600 IU , TWICE A MONTH
     Route: 042
  18. ELELYSO [Suspect]
     Active Substance: TALIGLUCERASE ALFA
     Dosage: 2600 IU, 2X/WEEK
     Route: 042
  19. ELELYSO [Suspect]
     Active Substance: TALIGLUCERASE ALFA
     Dosage: 13 VIALS FOR A TREATMEANT, 2X/MONTH
     Route: 042
  20. ELELYSO [Suspect]
     Active Substance: TALIGLUCERASE ALFA
     Dosage: 13 VIALS FOR A TREATMEANT, 2X/MONTH
     Route: 042
  21. ELELYSO [Suspect]
     Active Substance: TALIGLUCERASE ALFA
     Dosage: 13 VIALS FOR A TREATMEANT
     Route: 042
  22. ELELYSO [Suspect]
     Active Substance: TALIGLUCERASE ALFA
     Dosage: 200 IU
     Route: 042
  23. ELELYSO [Suspect]
     Active Substance: TALIGLUCERASE ALFA
     Dosage: 13 VIALS
     Route: 042
     Dates: start: 20170913
  24. ELELYSO [Suspect]
     Active Substance: TALIGLUCERASE ALFA
     Dosage: 13 VIALS
     Route: 042
  25. ELELYSO [Suspect]
     Active Substance: TALIGLUCERASE ALFA
     Dosage: 13 VIALS
     Route: 042
     Dates: start: 20230530
  26. ELELYSO [Suspect]
     Active Substance: TALIGLUCERASE ALFA
     Dosage: 13 VIALS
     Route: 042
  27. ELELYSO [Suspect]
     Active Substance: TALIGLUCERASE ALFA
     Dosage: 200 IU, FREQUENCY 13 VIALS
     Route: 042
     Dates: start: 20230709
  28. ELELYSO [Suspect]
     Active Substance: TALIGLUCERASE ALFA
     Dosage: 13 VIALS
     Route: 042
     Dates: start: 20230830, end: 20230830
  29. ELELYSO [Suspect]
     Active Substance: TALIGLUCERASE ALFA
     Dosage: 200 IU, 13 VIALS
     Route: 042
  30. ELELYSO [Suspect]
     Active Substance: TALIGLUCERASE ALFA
     Dosage: 200 IU, 13 VIALS
     Route: 042
  31. ELELYSO [Suspect]
     Active Substance: TALIGLUCERASE ALFA
     Dosage: 2600 UNITS TWICE A MONTH
     Route: 042
     Dates: start: 20240226, end: 20240226
  32. ELELYSO [Suspect]
     Active Substance: TALIGLUCERASE ALFA
     Dosage: 200 IU (TREATMENT START HOUR: 17:00/END: 18:30)
     Route: 042
  33. ELELYSO [Suspect]
     Active Substance: TALIGLUCERASE ALFA
     Dosage: 13 VIALS
     Route: 042
     Dates: start: 20240505
  34. ELELYSO [Suspect]
     Active Substance: TALIGLUCERASE ALFA
     Dosage: 13 VIALS
     Route: 042
     Dates: start: 20240602, end: 20240602

REACTIONS (13)
  - Gingival operation [Unknown]
  - Nausea [Recovered/Resolved]
  - Vitamin D decreased [Unknown]
  - Infusion site extravasation [Unknown]
  - Coronavirus infection [Unknown]
  - Illness [Unknown]
  - Agitation [Unknown]
  - Infusion site swelling [Unknown]
  - Dental care [Unknown]
  - Inappropriate schedule of product administration [Unknown]
  - Incorrect dose administered [Unknown]
  - Product administration interrupted [Unknown]
  - Product dose omission issue [Unknown]
